FAERS Safety Report 25154311 (Version 1)
Quarter: 2025Q2

REPORT INFORMATION
  Report Type: Spontaneous
  Country: GB (occurrence: GB)
  Receive Date: 20250403
  Receipt Date: 20250403
  Transmission Date: 20250716
  Serious: Yes (Other)
  Sender: ADVANZ PHARMA
  Company Number: GB-ADVANZ PHARMA-202503002201

PATIENT

DRUGS (4)
  1. ZONEGRAN [Suspect]
     Active Substance: ZONISAMIDE
     Indication: Epilepsy
     Route: 048
  2. ZONEGRAN [Suspect]
     Active Substance: ZONISAMIDE
     Indication: Epilepsy
     Route: 048
  3. NAPROXEN [Concomitant]
     Active Substance: NAPROXEN
  4. NAPROXEN [Concomitant]
     Active Substance: NAPROXEN
     Dates: start: 202501

REACTIONS (5)
  - Migraine [Unknown]
  - Headache [Unknown]
  - Fatigue [Unknown]
  - Product quality issue [Unknown]
  - Expired product administered [Unknown]

NARRATIVE: CASE EVENT DATE: 20250112
